FAERS Safety Report 9630497 (Version 6)
Quarter: 2015Q3

REPORT INFORMATION
  Report Type: Report from Study
  Country: CA (occurrence: CA)
  Receive Date: 20131018
  Receipt Date: 20150817
  Transmission Date: 20151125
  Serious: Yes (Hospitalization, Other)
  Sender: FDA-Public Use
  Company Number: CA-ROCHE-1139277

PATIENT
  Age: 70 Year
  Sex: Female

DRUGS (16)
  1. PANTOLOC [Concomitant]
     Active Substance: PANTOPRAZOLE SODIUM
  2. RITUXAN [Suspect]
     Active Substance: RITUXIMAB
     Indication: RHEUMATOID ARTHRITIS
     Dosage: LAST DOSE WAS ON 6/MAY/2014
     Route: 042
     Dates: start: 20110912
  3. RITUXAN [Suspect]
     Active Substance: RITUXIMAB
     Dosage: LAST DOSE WAS ON 6/MAY/2014
     Route: 042
     Dates: start: 20150728
  4. PLAQUENIL [Concomitant]
     Active Substance: HYDROXYCHLOROQUINE SULFATE
  5. PREDNISONE. [Concomitant]
     Active Substance: PREDNISONE
  6. ACETAMINOPHEN. [Concomitant]
     Active Substance: ACETAMINOPHEN
     Route: 048
     Dates: start: 20120321
  7. PREMARIN [Concomitant]
     Active Substance: ESTROGENS, CONJUGATED
  8. DIPHENHYDRAMINE HCL [Concomitant]
     Active Substance: DIPHENHYDRAMINE HYDROCHLORIDE
     Indication: PREMEDICATION
     Route: 048
     Dates: start: 20120307, end: 20120926
  9. ESTRACE [Concomitant]
     Active Substance: ESTRADIOL
  10. BROMAZEPAM [Concomitant]
     Active Substance: BROMAZEPAM
  11. LECTOPAM [Concomitant]
     Active Substance: BROMAZEPAM
     Route: 048
  12. AVELOX [Concomitant]
     Active Substance: MOXIFLOXACIN HYDROCHLORIDE
  13. ACETAMINOPHEN. [Concomitant]
     Active Substance: ACETAMINOPHEN
     Indication: PREMEDICATION
     Route: 048
     Dates: start: 20120307
  14. METHYLPREDNISOLONE. [Concomitant]
     Active Substance: METHYLPREDNISOLONE
     Indication: PREMEDICATION
     Route: 042
     Dates: start: 20120307, end: 20120926
  15. METHOTREXATE [Concomitant]
     Active Substance: METHOTREXATE
  16. PROVERA [Concomitant]
     Active Substance: MEDROXYPROGESTERONE ACETATE

REACTIONS (23)
  - Rash [Recovered/Resolved]
  - Headache [Not Recovered/Not Resolved]
  - Heart rate increased [Unknown]
  - Bronchospasm [Recovered/Resolved]
  - Pruritus [Recovered/Resolved]
  - Rhinorrhoea [Unknown]
  - Insomnia [Recovered/Resolved]
  - Infusion related reaction [Unknown]
  - Nausea [Recovered/Resolved]
  - Cough [Unknown]
  - Bronchitis [Recovered/Resolved]
  - Musculoskeletal pain [Unknown]
  - Occipital neuralgia [Not Recovered/Not Resolved]
  - Increased bronchial secretion [Recovering/Resolving]
  - Erythema [Recovered/Resolved]
  - Respiratory rate increased [Unknown]
  - Sinus headache [Not Recovered/Not Resolved]
  - Diarrhoea [Recovered/Resolved]
  - Asthma [Not Recovered/Not Resolved]
  - Abdominal pain upper [Unknown]
  - Blood pressure increased [Recovered/Resolved]
  - Blood pressure increased [Unknown]
  - Weight decreased [Unknown]

NARRATIVE: CASE EVENT DATE: 20120912
